FAERS Safety Report 23764348 (Version 1)
Quarter: 2024Q2

REPORT INFORMATION
  Report Type: Spontaneous
  Country: US (occurrence: US)
  Receive Date: 20240420
  Receipt Date: 20240420
  Transmission Date: 20240716
  Serious: No
  Sender: FDA-Public Use
  Company Number: US-HALEON-2167109

PATIENT

DRUGS (2)
  1. POTASSIUM NITRATE\SODIUM FLUORIDE [Suspect]
     Active Substance: POTASSIUM NITRATE\SODIUM FLUORIDE
     Indication: Dental cleaning
  2. POTASSIUM NITRATE\SODIUM FLUORIDE [Suspect]
     Active Substance: POTASSIUM NITRATE\SODIUM FLUORIDE
     Indication: Tooth whitening

REACTIONS (1)
  - Therapeutic product effect incomplete [Unknown]
